FAERS Safety Report 7481398-7 (Version None)
Quarter: 2011Q2

REPORT INFORMATION
  Report Type: 
  Country: None (occurrence: None)
  Receive Date: 20110516
  Receipt Date: 20110506
  Transmission Date: 20111010
  Serious: Yes (Death, Other)
  Sender: FDA-Public Use
  Company Number: FR-ELI_LILLY_AND_COMPANY-FR201105001621

PATIENT
  Sex: Male
  Weight: 71 kg

DRUGS (10)
  1. GEMZAR [Suspect]
     Dosage: UNK, UNKNOWN
     Route: 042
     Dates: start: 20100709, end: 20100709
  2. AMITRIPTYLINE HCL [Concomitant]
     Dosage: 50 MG X 1.5 QD
     Route: 048
     Dates: end: 20100829
  3. GENTAMICIN [Concomitant]
     Dosage: UNK
     Route: 042
     Dates: start: 20100713, end: 20100715
  4. ATORVASTATIN CALCIUM [Concomitant]
     Dosage: 20 MG, QD
     Dates: end: 20100829
  5. ATARAX [Concomitant]
     Indication: INSOMNIA
     Dosage: 25 MG X 0.5 QD
     Dates: end: 20100829
  6. MODOPAR [Concomitant]
     Dosage: 125 MG, TID
     Route: 048
  7. MEPROBAMATE [Suspect]
     Dosage: 250 MG X 3 QD
     Route: 048
     Dates: end: 20100829
  8. ROCEPHIN [Concomitant]
     Dosage: UNK
     Route: 042
     Dates: start: 20100713, end: 20100715
  9. NEO-MERCAZOLE TAB [Concomitant]
     Dosage: 20 MG, QD
     Route: 048
  10. STABLON [Concomitant]
     Dosage: 12.58 MG, QD
     Route: 048
     Dates: end: 20100829

REACTIONS (6)
  - DEHYDRATION [None]
  - RESPIRATORY DISTRESS [None]
  - PNEUMONIA ASPIRATION [None]
  - RENAL FAILURE [None]
  - CLOSTRIDIUM DIFFICILE COLITIS [None]
  - ANAEMIA [None]
